FAERS Safety Report 25321444 (Version 1)
Quarter: 2025Q2

REPORT INFORMATION
  Report Type: Spontaneous
  Country: ID (occurrence: ID)
  Receive Date: 20250516
  Receipt Date: 20250516
  Transmission Date: 20250717
  Serious: Yes (Other)
  Sender: JOHNSON AND JOHNSON
  Company Number: ID-JNJFOC-20250507699

PATIENT

DRUGS (8)
  1. SIRTURO [Suspect]
     Active Substance: BEDAQUILINE FUMARATE
     Indication: Tuberculosis
     Route: 048
  2. ETHIONAMIDE [Suspect]
     Active Substance: ETHIONAMIDE
  3. ISONIAZID [Suspect]
     Active Substance: ISONIAZID
  4. PYRAZINAMIDE [Suspect]
     Active Substance: PYRAZINAMIDE
  5. CLOFAZIMINE [Concomitant]
     Active Substance: CLOFAZIMINE
     Indication: Product used for unknown indication
  6. CYCLOSERINE [Concomitant]
     Active Substance: CYCLOSERINE
     Indication: Product used for unknown indication
  7. LEVOFLOXACIN [Concomitant]
     Active Substance: LEVOFLOXACIN
     Indication: Product used for unknown indication
  8. LINEZOLID [Concomitant]
     Active Substance: LINEZOLID
     Indication: Product used for unknown indication

REACTIONS (36)
  - Thrombocytopenia [Unknown]
  - Hypokalaemia [Unknown]
  - Hyponatraemia [Unknown]
  - Vision blurred [Unknown]
  - Hyperkalaemia [Unknown]
  - Seizure [Unknown]
  - Electrocardiogram QT prolonged [Unknown]
  - Hallucination [Unknown]
  - Nephropathy toxic [Unknown]
  - Hepatotoxicity [Unknown]
  - Hypothyroidism [Unknown]
  - Nausea [Unknown]
  - Vomiting [Unknown]
  - Decreased appetite [Unknown]
  - Abdominal pain [Unknown]
  - Arthralgia [Unknown]
  - Anaemia [Unknown]
  - Diarrhoea [Unknown]
  - Flatulence [Unknown]
  - Hypocalcaemia [Unknown]
  - Hypernatraemia [Unknown]
  - Hypomagnesaemia [Unknown]
  - Hypoaesthesia [Unknown]
  - Joint swelling [Unknown]
  - Arthralgia [Unknown]
  - Headache [Unknown]
  - Vertigo [Unknown]
  - Skin discolouration [Unknown]
  - Rash [Unknown]
  - Dermatitis allergic [Unknown]
  - Chest pain [Unknown]
  - Palpitations [Unknown]
  - Sleep disorder [Unknown]
  - Personality change [Unknown]
  - Depression [Unknown]
  - Hypoacusis [Unknown]
